FAERS Safety Report 7471862-9 (Version None)
Quarter: 2011Q2

REPORT INFORMATION
  Report Type: 
  Country: None (occurrence: None)
  Receive Date: 20110511
  Receipt Date: 20100618
  Transmission Date: 20111010
  Serious: No
  Sender: FDA-Public Use
  Company Number: A0866106A

PATIENT
  Age: 58 Year
  Sex: Female

DRUGS (8)
  1. PREVACID [Concomitant]
  2. ASPIRIN [Concomitant]
  3. CALTRATE + D [Concomitant]
  4. XANAX [Concomitant]
  5. VITAMIN E [Concomitant]
  6. FEMARA [Concomitant]
  7. TYKERB [Suspect]
     Dosage: 1500MG PER DAY
     Route: 048
     Dates: start: 20100605
  8. ZOCOR [Concomitant]

REACTIONS (2)
  - DIARRHOEA [None]
  - RASH [None]
